FAERS Safety Report 16343983 (Version 1)
Quarter: 2019Q2

REPORT INFORMATION
  Report Type: Spontaneous
  Country: FR (occurrence: FR)
  Receive Date: 20190522
  Receipt Date: 20190522
  Transmission Date: 20190711
  Serious: Yes (Hospitalization)
  Sender: FDA-Public Use
  Company Number: FR-ANIPHARMA-2019-FR-000107

PATIENT
  Age: 83 Year
  Sex: Female
  Weight: 48 kg

DRUGS (13)
  1. PARACETAMOL [Suspect]
     Active Substance: ACETAMINOPHEN
     Dosage: 1 DF DAILY
     Route: 048
     Dates: end: 20190409
  2. ALPRAZOLAM. [Suspect]
     Active Substance: ALPRAZOLAM
     Dosage: .5 MG DAILY
     Route: 048
     Dates: end: 20190403
  3. OXYCONTIN [Suspect]
     Active Substance: OXYCODONE HYDROCHLORIDE
     Dosage: 2 DF DAILY
     Route: 048
     Dates: end: 20190403
  4. KARDEGIC [Suspect]
     Active Substance: ASPIRIN DL-LYSINE
     Dosage: 1 DF DAILY
     Route: 048
     Dates: end: 20190403
  5. OXYNORM [Suspect]
     Active Substance: OXYCODONE HYDROCHLORIDE
     Dosage: 4 DF DAILY
     Route: 048
     Dates: end: 20190403
  6. ARIMIDEX [Suspect]
     Active Substance: ANASTROZOLE
     Indication: BREAST CANCER
     Dosage: 1 DF UNK
     Route: 048
     Dates: end: 20190403
  7. PANTOPRAZOLE [Suspect]
     Active Substance: PANTOPRAZOLE
     Dosage: 20 MG DAILY
     Route: 048
     Dates: end: 20190403
  8. DIFFU K [Suspect]
     Active Substance: POTASSIUM CHLORIDE
     Dosage: 1 DF DAILY
     Route: 048
     Dates: end: 20190403
  9. LYRICA [Suspect]
     Active Substance: PREGABALIN
     Dosage: 2 DF DAILY
     Route: 048
     Dates: end: 20190403
  10. FOLIC ACID. [Suspect]
     Active Substance: FOLIC ACID
     Dosage: 1 DF DAILY
     Route: 048
     Dates: end: 20190403
  11. BISOPROLOL HEMIFUMARATE [Suspect]
     Active Substance: BISOPROLOL FUMARATE
     Dosage: 5 MG DAILY
     Route: 048
     Dates: end: 20190403
  12. LAROXYL [Suspect]
     Active Substance: AMITRIPTYLINE HYDROCHLORIDE
     Dosage: 10 GTT DAILY
     Route: 048
     Dates: end: 20190403
  13. FUROSEMIDE. [Suspect]
     Active Substance: FUROSEMIDE
     Dosage: 20 MG DAILY
     Route: 048
     Dates: end: 20190403

REACTIONS (1)
  - Intestinal obstruction [Recovered/Resolved]

NARRATIVE: CASE EVENT DATE: 20190404
